FAERS Safety Report 19765325 (Version 3)
Quarter: 2021Q4

REPORT INFORMATION
  Report Type: Spontaneous
  Country: US (occurrence: US)
  Receive Date: 20210830
  Receipt Date: 20211026
  Transmission Date: 20220303
  Serious: Yes (Other)
  Sender: FDA-Public Use
  Company Number: US-JNJFOC-20210853621

PATIENT
  Age: 57 Year
  Sex: Female

DRUGS (6)
  1. ELMIRON [Suspect]
     Active Substance: PENTOSAN POLYSULFATE SODIUM
     Indication: Cystitis interstitial
     Route: 048
     Dates: start: 20160802, end: 20200322
  2. VENLAFAXINE [Concomitant]
     Active Substance: VENLAFAXINE HYDROCHLORIDE
     Indication: Hypertension
     Route: 065
     Dates: start: 2015
  3. TRIAZOLAM [Concomitant]
     Active Substance: TRIAZOLAM
     Indication: Hypertension
     Route: 065
     Dates: start: 2015
  4. LORAZEPAM [Concomitant]
     Active Substance: LORAZEPAM
     Indication: Hypertension
     Route: 065
     Dates: start: 2015
  5. PHENAZOPYRIDINE [Concomitant]
     Active Substance: PHENAZOPYRIDINE
     Indication: Fibromyalgia
     Route: 065
     Dates: start: 2012
  6. FLEXERIL [Concomitant]
     Active Substance: CYCLOBENZAPRINE HYDROCHLORIDE
     Indication: Hypertension
     Route: 065
     Dates: start: 2019

REACTIONS (1)
  - Retinal pigmentation [Unknown]

NARRATIVE: CASE EVENT DATE: 20210101
